FAERS Safety Report 8673547 (Version 2)
Quarter: 2012Q4

REPORT INFORMATION
  Report Type: 
  Country: US (occurrence: US)
  Receive Date: 20120719
  Receipt Date: 20121019
  Transmission Date: 20130627
  Serious: Yes (Hospitalization)
  Sender: FDA-Public Use
  Company Number: US-BRISTOL-MYERS SQUIBB COMPANY-16567877

PATIENT
  Age: 53 Year
  Sex: Female

DRUGS (1)
  1. YERVOY [Suspect]
     Route: 058

REACTIONS (2)
  - Hepatic failure [Unknown]
  - Metastases to liver [Unknown]
